FAERS Safety Report 14351013 (Version 1)
Quarter: 2018Q1

REPORT INFORMATION
  Report Type: Spontaneous
  Country: GB (occurrence: GB)
  Receive Date: 20180104
  Receipt Date: 20180104
  Transmission Date: 20180509
  Serious: Yes (Life-Threatening, Hospitalization, Other)
  Sender: FDA-Public Use
  Company Number: GB-NOVOPROD-579634

PATIENT
  Age: 30 Year
  Sex: Male
  Weight: 99 kg

DRUGS (2)
  1. NOVORAPID [Concomitant]
     Active Substance: INSULIN ASPART
     Dosage: UNK
     Route: 065
  2. TRESIBA [Suspect]
     Active Substance: INSULIN DEGLUDEC
     Indication: TYPE 1 DIABETES MELLITUS
     Dosage: UNK
     Route: 058

REACTIONS (5)
  - Memory impairment [Not Recovered/Not Resolved]
  - Aggression [Unknown]
  - Delirium [Recovered/Resolved with Sequelae]
  - Seizure [Unknown]
  - Hypoglycaemia unawareness [Recovered/Resolved with Sequelae]

NARRATIVE: CASE EVENT DATE: 20170414
